FAERS Safety Report 11743257 (Version 2)
Quarter: 2015Q4

REPORT INFORMATION
  Report Type: Spontaneous
  Country: IN (occurrence: IN)
  Receive Date: 20151116
  Receipt Date: 20151120
  Transmission Date: 20160304
  Serious: Yes (Life-Threatening, Other)
  Sender: FDA-Public Use
  Company Number: IN-PFIZER INC-2015381531

PATIENT
  Age: 25 Year
  Sex: Female
  Weight: 55 kg

DRUGS (3)
  1. METHYLDOPA. [Suspect]
     Active Substance: METHYLDOPA
     Indication: GESTATIONAL HYPERTENSION
     Dosage: 600 MG, UNK
     Route: 048
  2. ATENOLOL. [Suspect]
     Active Substance: ATENOLOL
     Indication: HYPERTENSION
     Dosage: 1000 MG, (20 TABLETS OF 50 MG)
     Route: 048
  3. CIPROFLOXACIN. [Suspect]
     Active Substance: CIPROFLOXACIN
     Dosage: 2500 MG, UNK
     Route: 048

REACTIONS (6)
  - Sinus bradycardia [Unknown]
  - Electrocardiogram QRS complex prolonged [Unknown]
  - Atrioventricular block first degree [Recovered/Resolved]
  - Dizziness [Unknown]
  - Overdose [Unknown]
  - Hypotension [Unknown]
